FAERS Safety Report 24422077 (Version 1)
Quarter: 2024Q4

REPORT INFORMATION
  Report Type: Spontaneous
  Country: FR (occurrence: FR)
  Receive Date: 20241010
  Receipt Date: 20241010
  Transmission Date: 20250114
  Serious: Yes (Hospitalization)
  Sender: AUROBINDO
  Company Number: FR-AFSSAPS-BR2024000771

PATIENT
  Age: 89 Year
  Sex: Female
  Weight: 52.6 kg

DRUGS (6)
  1. GABAPENTIN [Suspect]
     Active Substance: GABAPENTIN
     Indication: Product used for unknown indication
     Dosage: 100 MILLIGRAM
     Route: 048
     Dates: start: 20240918, end: 20240918
  2. NICARDIPINE HYDROCHLORIDE [Suspect]
     Active Substance: NICARDIPINE HYDROCHLORIDE
     Indication: Product administration error
     Dosage: 1 DOSAGE FORM
     Route: 048
     Dates: start: 20240918, end: 20240918
  3. MIRTAZAPINE [Suspect]
     Active Substance: MIRTAZAPINE
     Indication: Product administration error
     Dosage: 30 MILLIGRAM
     Route: 048
     Dates: start: 20240918, end: 20240918
  4. RISPERDAL [Suspect]
     Active Substance: RISPERIDONE
     Indication: Product administration error
     Dosage: 1 DOSAGE FORM
     Route: 048
     Dates: start: 20240918, end: 20240918
  5. OXAZEPAM [Suspect]
     Active Substance: OXAZEPAM
     Indication: Product administration error
     Dosage: 1 DOSAGE FORM
     Route: 048
     Dates: start: 20240918, end: 20240918
  6. FERROUS SULFATE [Suspect]
     Active Substance: FERROUS SULFATE
     Indication: Product administration error
     Dosage: 1 DOSAGE FORM
     Route: 048
     Dates: start: 20240918, end: 20240918

REACTIONS (1)
  - Product administration error [Recovered/Resolved]

NARRATIVE: CASE EVENT DATE: 20240918
